FAERS Safety Report 21292735 (Version 1)
Quarter: 2022Q3

REPORT INFORMATION
  Report Type: Spontaneous
  Country: FR (occurrence: FR)
  Receive Date: 20220905
  Receipt Date: 20220905
  Transmission Date: 20221026
  Serious: Yes (Hospitalization)
  Sender: FDA-Public Use
  Company Number: None

PATIENT
  Age: 69 Year
  Sex: Male
  Weight: 92.5 kg

DRUGS (22)
  1. RAMIPRIL [Suspect]
     Active Substance: RAMIPRIL
     Indication: Hypertension
     Dosage: UNIT DOSE : 1.25 MG, FREQUENCY TIME : 1 DAY,  DURATION :5 DAYS
     Route: 065
     Dates: start: 20220721, end: 20220726
  2. SPIRONOLACTONE [Suspect]
     Active Substance: SPIRONOLACTONE
     Indication: Fluid retention
     Dosage: UNIT DOSE : 50MG, FREQUENCY TIME : 1 DAY ,  THERAPY START DATE : ASKU
     Route: 065
     Dates: end: 20220725
  3. BISOPROLOL FUMARATE [Suspect]
     Active Substance: BISOPROLOL FUMARATE
     Indication: Hypertension
     Dosage: UNIT DOSE :2.5 MG , FREQUENCY TIME : 1 DAY, THERAPY END DATE : NASK
     Route: 065
     Dates: start: 20220721
  4. POTASSIUM BITARTRATE\SODIUM BICARBONATE [Suspect]
     Active Substance: POTASSIUM BITARTRATE\SODIUM BICARBONATE
     Indication: Product used for unknown indication
     Dosage: EFFERVESCENT SUPPOSITORY, UNIT DOSE : 1 DOSAGE FORM, FREQUENCY TIME : 1 AS REQUIRED, THERAPY START D
     Route: 065
  5. LANSOPRAZOLE [Concomitant]
     Active Substance: LANSOPRAZOLE
     Indication: Product used for unknown indication
     Dosage: UNIT DOSE :  30MG, FREQUENCY TIME : 1 DAY , THERAPY START DATE : ASKU
  6. TOUJEO [Concomitant]
     Active Substance: INSULIN GLARGINE
     Indication: Product used for unknown indication
     Dosage: UNIT DOSE :  32 IU , FREQUENCY TIME : 1 DAY , THERAPY START DATE : ASKU
  7. KARDEGIC [Concomitant]
     Active Substance: ASPIRIN DL-LYSINE
     Indication: Product used for unknown indication
     Dosage: IN SACHET-DOSE , UNIT DOSE AND STRENGTH : 75 MG
  8. GAVISCON [Concomitant]
     Active Substance: ALUMINUM HYDROXIDE\MAGNESIUM CARBONATE
     Indication: Product used for unknown indication
     Dosage: UNIT DOSE : 6 DOSAGE FORMS, FREQUENCY TIME : 1 DAY, THERAPY START DATE : ASKU
  9. ATORVASTATIN [Concomitant]
     Active Substance: ATORVASTATIN
     Indication: Product used for unknown indication
     Dosage: UNIT DOSE :  40MG, FREQUENCY TIME : 1 DAY, THERAPY START DATE : ASKU
  10. SERETIDE [Concomitant]
     Active Substance: FLUTICASONE PROPIONATE\SALMETEROL XINAFOATE
     Indication: Product used for unknown indication
     Dosage: 500/50 MICROGRAMS/DOSE, POWDER FOR INHALATION IN A SINGLE-DOSE CONTAINER , UNIT DOSE : 1 DOSAGE FORM
  11. AMIODARONE [Concomitant]
     Active Substance: AMIODARONE
     Indication: Product used for unknown indication
     Dosage: UNIT DOSE :  200MG, FREQUENCY TIME : 1 DAY , THERAPY START DATE : ASKU
  12. POLYETHYLENE GLYCOLS [Concomitant]
     Active Substance: POLYETHYLENE GLYCOLS
     Indication: Product used for unknown indication
     Dosage: UNIT DOSE : 4 DOSAGE FORMS, FREQUENCY TIME : 1 DAY , THERAPY START DATE : ASKU, THERAPY END DATE : A
  13. APIXABAN [Concomitant]
     Active Substance: APIXABAN
     Indication: Product used for unknown indication
     Dosage: UNIT DOSE :  10MG, FREQUENCY TIME : 1 DAY , THERAPY START DATE : ASKU
  14. LEVETIRACETAM [Concomitant]
     Active Substance: LEVETIRACETAM
     Indication: Product used for unknown indication
     Dosage: UNIT DOSE :  750MG, FREQUENCY TIME : 1 DAY, THERAPY START DATE : ASKU
  15. FOLIC ACID [Concomitant]
     Active Substance: FOLIC ACID
     Indication: Product used for unknown indication
     Dosage: UNIT DOSE :  5 MG, FREQUENCY TIME : 1 WEEKS, THERAPY START DATE : ASKU
  16. FUROSEMIDE [Concomitant]
     Active Substance: FUROSEMIDE
     Indication: Product used for unknown indication
     Dosage: UNIT DOSE : 40 MG,  FREQUENCY TIME : 1 DAY, THERAPY START DATE : ASKU
     Dates: end: 20220725
  17. SPIRIVA [Concomitant]
     Active Substance: TIOTROPIUM BROMIDE MONOHYDRATE
     Indication: Product used for unknown indication
     Dosage: UNIT DOSE : 1 DOSAGE FORM , FREQUENCY TIME : 1 DAY, THERAPY START DATE : ASKU,
  18. ACETAMINOPHEN [Concomitant]
     Active Substance: ACETAMINOPHEN
     Indication: Product used for unknown indication
     Dosage: UNIT DOSE : 1 DOSAGE FORM, FREQUENCY TIME : 1 AS REQUIRED , THERAPY START DATE : ASKU
  19. ALBUTEROL [Concomitant]
     Active Substance: ALBUTEROL
     Indication: Product used for unknown indication
     Dosage: UNIT DOSE : 1 DOSAGE FORM, FREQUENCY TIME : 1 AS REQUIRED,THERAPY START DATE : ASKU
  20. METHOTREXATE [Concomitant]
     Active Substance: METHOTREXATE
     Indication: Product used for unknown indication
     Dosage: UNIT DOSE :  17.5 MG, FREQUENCY TIME : 1 WEEKS ,THERAPY START DATE : ASKU
  21. PREDNISONE [Concomitant]
     Active Substance: PREDNISONE
     Indication: Rheumatoid arthritis
     Dosage: UNIT DOSE :  6 MG,  FREQUENCY TIME : 1 DAY, THERAPY START DATE : ASKU
  22. NOVORAPID [Concomitant]
     Active Substance: INSULIN ASPART
     Indication: Product used for unknown indication
     Dosage: ACCORDING TO PROTOCOL, THERAPY START DATE : ASKU

REACTIONS (2)
  - Hyponatraemia [Recovered/Resolved]
  - Hyperkalaemia [Recovered/Resolved]

NARRATIVE: CASE EVENT DATE: 20220723
